FAERS Safety Report 17934873 (Version 1)
Quarter: 2020Q2

REPORT INFORMATION
  Report Type: Spontaneous
  Country: US (occurrence: US)
  Receive Date: 20200623
  Receipt Date: 20200623
  Transmission Date: 20200714
  Serious: Yes (Other)
  Sender: FDA-Public Use
  Company Number: None

PATIENT
  Age: 69 Year
  Sex: Female

DRUGS (14)
  1. OPSUMIT [Suspect]
     Active Substance: MACITENTAN
     Indication: PULMONARY HYPERTENSION
     Route: 048
     Dates: start: 202001
  2. SERTRALINE [Concomitant]
     Active Substance: SERTRALINE HYDROCHLORIDE
  3. TORSEMIDE. [Concomitant]
     Active Substance: TORSEMIDE
  4. DIGOXIN. [Concomitant]
     Active Substance: DIGOXIN
  5. CERADROXIL [Concomitant]
  6. K-TAB [Concomitant]
     Active Substance: POTASSIUM CHLORIDE
  7. B COMPLEX W-VIT C [Concomitant]
  8. ATORVASTATIN [Concomitant]
     Active Substance: ATORVASTATIN
  9. CALCIUM WITH VIT D [Concomitant]
  10. UPTRAVI [Concomitant]
     Active Substance: SELEXIPAG
  11. WARFARIN [Concomitant]
     Active Substance: WARFARIN
  12. SILDENAFIL. [Concomitant]
     Active Substance: SILDENAFIL
  13. NORCO [Concomitant]
     Active Substance: ACETAMINOPHEN\HYDROCODONE BITARTRATE
  14. SPIRONOLACTONE. [Concomitant]
     Active Substance: SPIRONOLACTONE

REACTIONS (4)
  - Fall [None]
  - Radius fracture [None]
  - Skin laceration [None]
  - Arthralgia [None]

NARRATIVE: CASE EVENT DATE: 20200602
